FAERS Safety Report 20999062 (Version 8)
Quarter: 2023Q1

REPORT INFORMATION
  Report Type: Spontaneous
  Country: US (occurrence: US)
  Receive Date: 20220623
  Receipt Date: 20230119
  Transmission Date: 20230417
  Serious: No
  Sender: FDA-Public Use
  Company Number: US-BIOVITRUM-2022US07524

PATIENT
  Age: 74 Year
  Sex: Male

DRUGS (15)
  1. KINERET [Suspect]
     Active Substance: ANAKINRA
     Indication: Monoclonal gammopathy
     Dates: start: 20220603
  2. KINERET [Suspect]
     Active Substance: ANAKINRA
     Indication: Schnitzler^s syndrome
     Dates: start: 202206
  3. ALBUTEROL [Concomitant]
     Active Substance: ALBUTEROL
     Dosage: INHALER
  4. METFORMIN [Concomitant]
     Active Substance: METFORMIN HYDROCHLORIDE
  5. CANDESARTAN CILEXETIL [Concomitant]
     Active Substance: CANDESARTAN CILEXETIL
  6. VITAMIN B12 [Concomitant]
     Active Substance: CYANOCOBALAMIN
  7. ERGOCALCIFEROL [Concomitant]
     Active Substance: ERGOCALCIFEROL
  8. VITAMIN C [Concomitant]
     Active Substance: ASCORBIC ACID
  9. AMLODIPINE [Concomitant]
     Active Substance: AMLODIPINE BESYLATE
  10. SINGULAIR [Concomitant]
     Active Substance: MONTELUKAST SODIUM
  11. FUROSEMIDE [Concomitant]
     Active Substance: FUROSEMIDE
  12. GABAPENTIN [Concomitant]
     Active Substance: GABAPENTIN
  13. FAMOTIDINE [Concomitant]
     Active Substance: FAMOTIDINE
  14. VITAMINS [Concomitant]
     Active Substance: VITAMINS
  15. AZELASTINE [Concomitant]
     Active Substance: AZELASTINE

REACTIONS (15)
  - Dizziness [Recovered/Resolved]
  - Feeling abnormal [Unknown]
  - Red blood cell sedimentation rate decreased [Unknown]
  - C-reactive protein decreased [Unknown]
  - Blood triglycerides increased [Unknown]
  - Gait disturbance [Unknown]
  - White blood cell count decreased [Unknown]
  - Balance disorder [Unknown]
  - Arthralgia [Unknown]
  - Bursitis [Unknown]
  - Injection site pain [Unknown]
  - Injection site erythema [Unknown]
  - Injection site mass [Unknown]
  - Rash [Unknown]
  - Off label use [Unknown]

NARRATIVE: CASE EVENT DATE: 20220603
